FAERS Safety Report 6648607-5 (Version None)
Quarter: 2010Q1

REPORT INFORMATION
  Report Type: 
  Country: None (occurrence: None)
  Receive Date: 20100324
  Receipt Date: 20100311
  Transmission Date: 20100710
  Serious: Yes (Hospitalization)
  Sender: FDA-Public Use
  Company Number: FR-ELI_LILLY_AND_COMPANY-FR201003002967

PATIENT
  Sex: Female

DRUGS (2)
  1. ALIMTA [Suspect]
     Dosage: UNK, UNKNOWN
     Route: 042
     Dates: start: 20100105, end: 20100126
  2. CISPLATIN [Concomitant]
     Dosage: 150 MG, UNKNOWN
     Route: 042
     Dates: start: 20100105

REACTIONS (5)
  - BURNING SENSATION [None]
  - ERYTHEMA [None]
  - HOT FLUSH [None]
  - PARAESTHESIA [None]
  - PYREXIA [None]
